FAERS Safety Report 8624083-8 (Version None)
Quarter: 2012Q3

REPORT INFORMATION
  Report Type: 
  Country: None (occurrence: None)
  Receive Date: 20120824
  Receipt Date: 20120824
  Transmission Date: 20120928
  Serious: Yes (Other)
  Sender: FDA-Public Use
  Company Number: None

PATIENT
  Sex: Female

DRUGS (1)
  1. HUMATROPE [Suspect]
     Dosage: 0.2 MG, QD, SUB
     Route: 058
     Dates: start: 20120718

REACTIONS (2)
  - BONE PAIN [None]
  - MOOD SWINGS [None]
